FAERS Safety Report 4490779-5 (Version None)
Quarter: 2004Q4

REPORT INFORMATION
  Report Type: 
  Country: None (occurrence: None)
  Receive Date: 20041102
  Receipt Date: 20040805
  Transmission Date: 20050328
  Serious: Yes (Other)
  Sender: FDA-Public Use
  Company Number: PHEH2004US08486

PATIENT
  Age: 59 Year
  Sex: Female

DRUGS (15)
  1. TRILEPTAL [Suspect]
     Indication: COMPLEX PARTIAL SEIZURES
     Dosage: 600 MG, BID
     Route: 048
     Dates: start: 20020901
  2. FUROSEMIDE [Concomitant]
     Dosage: 20 MG, QD
  3. K-DUR 10 [Concomitant]
     Dosage: 20 MEQ, QD
  4. LIPITOR [Concomitant]
     Dosage: 10 MG, QD
  5. PANTOPRAZOLE [Concomitant]
     Dosage: 40 MG, QD
  6. TOPROL-XL [Concomitant]
     Dosage: 25 MG, QD
  7. FLONASE [Concomitant]
     Dosage: 2 SPRAYS PER NOSTRIL, PRN
  8. MIACALCIN [Concomitant]
     Dosage: 1-200 I.U. SPRAY TO NOSTRIL, QD
  9. ESTRADIOL [Concomitant]
     Dosage: .05MG/DAY, QW
  10. MULTIVITAMIN [Concomitant]
     Dosage: 1 TAB QD
  11. CITRACAL [Concomitant]
     Dosage: 2 TABS, BID
  12. WARFARIN SODIUM [Concomitant]
     Dosage: 2.5 MG, QD
  13. PREDNISONE [Concomitant]
  14. SULCRATE [Concomitant]
     Dosage: 1 MG, TID
  15. PEPCID [Concomitant]
     Dosage: 40 MG, QD

REACTIONS (7)
  - CRANIOTOMY [None]
  - DIZZINESS [None]
  - DRUG LEVEL INCREASED [None]
  - FATIGUE [None]
  - GAIT DISTURBANCE [None]
  - LETHARGY [None]
  - SOMNOLENCE [None]
